FAERS Safety Report 14330483 (Version 1)
Quarter: 2017Q4

REPORT INFORMATION
  Report Type: Report from Study
  Country: ES (occurrence: ES)
  Receive Date: 20171227
  Receipt Date: 20171227
  Transmission Date: 20180321
  Serious: Yes (Other)
  Sender: FDA-Public Use
  Company Number: ES-VISTAPHARM, INC.-VER201712-001518

PATIENT

DRUGS (5)
  1. VALPROIC ACID. [Suspect]
     Active Substance: VALPROIC ACID
     Indication: PRODUCT USED FOR UNKNOWN INDICATION
  2. MIDAZOLAM [Concomitant]
     Active Substance: MIDAZOLAM HYDROCHLORIDE
  3. VECURONIUM [Concomitant]
     Active Substance: VECURONIUM BROMIDE
  4. FENTANYL. [Concomitant]
     Active Substance: FENTANYL
  5. MEROPENEM. [Suspect]
     Active Substance: MEROPENEM
     Indication: PRODUCT USED FOR UNKNOWN INDICATION

REACTIONS (4)
  - Hypertransaminasaemia [Unknown]
  - Drug interaction [Unknown]
  - Drug level decreased [Unknown]
  - Seizure [Unknown]
